FAERS Safety Report 7349048-8 (Version None)
Quarter: 2011Q1

REPORT INFORMATION
  Report Type: 
  Country: None (occurrence: None)
  Receive Date: 20110314
  Receipt Date: 20110309
  Transmission Date: 20110831
  Serious: No
  Sender: FDA-Public Use
  Company Number: US-TEVA-270642USA

PATIENT
  Sex: Female
  Weight: 56.75 kg

DRUGS (2)
  1. MULTI-VITAMIN [Concomitant]
     Indication: MEDICAL DIET
  2. PLAN B ONE-STEP [Suspect]
     Indication: POST COITAL CONTRACEPTION
     Route: 048

REACTIONS (3)
  - FATIGUE [None]
  - BREAST PAIN [None]
  - NAUSEA [None]
